FAERS Safety Report 22264087 (Version 1)
Quarter: 2023Q2

REPORT INFORMATION
  Report Type: Spontaneous
  Country: DE (occurrence: DE)
  Receive Date: 20230428
  Receipt Date: 20230428
  Transmission Date: 20230721
  Serious: Yes (Other)
  Sender: FDA-Public Use
  Company Number: DE-drreddys-LIT/GER/23/0164373

PATIENT
  Age: 67 Week
  Sex: Female

DRUGS (9)
  1. CYCLOPHOSPHAMIDE [Suspect]
     Active Substance: CYCLOPHOSPHAMIDE
     Indication: POEMS syndrome
  2. LENALIDOMIDE [Suspect]
     Active Substance: LENALIDOMIDE
     Indication: POEMS syndrome
  3. DOXORUBICIN [Suspect]
     Active Substance: DOXORUBICIN
     Indication: POEMS syndrome
  4. DARATUMUMAB [Suspect]
     Active Substance: DARATUMUMAB
     Indication: POEMS syndrome
  5. MELPHALAN [Suspect]
     Active Substance: MELPHALAN
     Indication: POEMS syndrome
  6. PREDNISONE [Suspect]
     Active Substance: PREDNISONE
     Indication: POEMS syndrome
  7. RITUXIMAB [Suspect]
     Active Substance: RITUXIMAB
     Indication: POEMS syndrome
  8. SILTUXIMAB [Suspect]
     Active Substance: SILTUXIMAB
     Indication: POEMS syndrome
  9. VINCRISTINE [Suspect]
     Active Substance: VINCRISTINE
     Indication: POEMS syndrome

REACTIONS (7)
  - Hypersensitivity [Unknown]
  - Plasma cell myeloma [Unknown]
  - Neuropathy peripheral [Unknown]
  - Drug ineffective [Unknown]
  - Thrombosis [Unknown]
  - Ischaemia [Unknown]
  - Osteolysis [Unknown]
